FAERS Safety Report 6217991-9 (Version None)
Quarter: 2009Q2

REPORT INFORMATION
  Report Type: 
  Country: None (occurrence: None)
  Receive Date: 20090608
  Receipt Date: 20090527
  Transmission Date: 20091009
  Serious: Yes (Life-Threatening, Hospitalization, Other)
  Sender: FDA-Public Use
  Company Number: US-PFIZER INC-2009194040

PATIENT
  Sex: Male
  Weight: 83 kg

DRUGS (54)
  1. VORICONAZOLE [Suspect]
     Indication: ANTIFUNGAL PROPHYLAXIS
     Dosage: 320 MG, 2X/DAY
     Route: 042
     Dates: start: 20090317, end: 20090405
  2. VORICONAZOLE [Suspect]
     Dosage: 300 MG, 2X/DAY
     Route: 048
     Dates: start: 20090405, end: 20090406
  3. ACETAMINOPHEN [Concomitant]
     Dosage: UNK
     Route: 048
     Dates: start: 20090316, end: 20090406
  4. ACYCLOVIR [Concomitant]
     Dosage: UNK
     Route: 048
     Dates: start: 20090316, end: 20090405
  5. CAMPHOR/MENTHOL/PHENOL [Concomitant]
     Dosage: UNK
     Route: 061
     Dates: start: 20090316, end: 20090328
  6. CEFTAZIDIME [Concomitant]
     Dosage: UNK
     Route: 042
     Dates: start: 20090322, end: 20090406
  7. CHLORHEXIDINE [Concomitant]
     Dosage: UNK
     Route: 048
     Dates: start: 20090316, end: 20090406
  8. CHLOROTHIAZIDE [Concomitant]
     Dosage: UNK
     Route: 048
     Dates: start: 20090324, end: 20090404
  9. CHLOROTHIAZIDE [Concomitant]
     Dosage: UNK
     Route: 042
     Dates: start: 20090405, end: 20090405
  10. DEXTROSE [Concomitant]
     Dosage: UNK
     Route: 042
     Dates: start: 20090322, end: 20090405
  11. DEXTROSE 5% AND SODIUM CHLORIDE 0.45% IN PLASTIC CONTAINER [Concomitant]
     Dosage: UNK
     Route: 042
     Dates: start: 20090315, end: 20090402
  12. DEXTROSE 5% AND SODIUM CHLORIDE 0.45% IN PLASTIC CONTAINER [Concomitant]
     Dosage: UNK
     Route: 042
     Dates: start: 20090405
  13. DIPHENHYDRAMINE [Concomitant]
     Dosage: UNK
     Route: 042
     Dates: start: 20090316, end: 20090406
  14. DOPAMINE [Concomitant]
     Dosage: UNK
     Route: 042
     Dates: start: 20090403, end: 20090405
  15. FILGRASTIM [Concomitant]
     Dosage: UNK
     Route: 058
     Dates: start: 20090401, end: 20090406
  16. FUROSEMIDE [Concomitant]
     Dosage: UNK
     Route: 042
     Dates: start: 20090323, end: 20090323
  17. FUROSEMIDE [Concomitant]
     Dosage: UNK
     Route: 042
     Dates: start: 20090325, end: 20090326
  18. FUROSEMIDE [Concomitant]
     Dosage: UNK
     Route: 042
     Dates: start: 20090402, end: 20090405
  19. GENTAMICIN [Concomitant]
     Dosage: UNK
     Route: 042
     Dates: start: 20090401, end: 20090403
  20. HEPARIN SODIUM [Concomitant]
     Dosage: UNK
     Route: 042
     Dates: start: 20090316, end: 20090406
  21. HYDROCORTISONE [Concomitant]
     Dosage: UNK
     Route: 042
     Dates: start: 20090318, end: 20090406
  22. HYDROXYZINE HYDROCHLORIDE [Concomitant]
     Dosage: UNK
     Route: 042
     Dates: start: 20090316
  23. HYDROXYZINE HYDROCHLORIDE [Concomitant]
     Dosage: UNK
     Route: 048
     Dates: start: 20090328, end: 20090406
  24. KETOROLAC [Concomitant]
     Dosage: UNK
     Route: 042
     Dates: start: 20090401, end: 20090403
  25. LAMOTRIGINE [Concomitant]
     Dosage: UNK
     Route: 048
     Dates: start: 20090316, end: 20090406
  26. LEVETIRACETAM [Concomitant]
     Dosage: UNK
     Route: 048
     Dates: start: 20090316, end: 20090405
  27. LEVETIRACETAM [Concomitant]
     Dosage: UNK
     Route: 042
     Dates: start: 20090406, end: 20090406
  28. GALENIC DIPHENHYDRAMINE/KAOLIN/PECTIN/LIDOCAINE [Concomitant]
     Dosage: ROUTE: MT
     Dates: start: 20090330, end: 20090405
  29. LORAZEPAM [Concomitant]
     Dosage: UNK
     Route: 042
     Dates: start: 20090316
  30. ATGAM [Concomitant]
     Dosage: UNK
     Route: 042
     Dates: start: 20090322, end: 20090324
  31. MAGNESIUM SULFATE [Concomitant]
     Dosage: UNK
     Route: 042
     Dates: start: 20090316, end: 20090404
  32. MELPHALAN [Concomitant]
     Dosage: UNK
     Route: 042
     Dates: start: 20090321, end: 20090323
  33. MORPHINE SULFATE [Concomitant]
     Dosage: UNK
     Route: 042
     Dates: start: 20090316, end: 20090405
  34. MOISTUREL [Concomitant]
     Dosage: UNK
     Route: 061
     Dates: start: 20090316, end: 20090404
  35. CELLCEPT [Concomitant]
     Dosage: UNK
     Route: 042
     Dates: start: 20090323
  36. NIFEDIPINE [Concomitant]
     Dosage: UNK
     Route: 060
     Dates: start: 20090316, end: 20090324
  37. NYSTATIN [Concomitant]
     Dosage: UNK
     Route: 061
     Dates: start: 20090330, end: 20090331
  38. ONDANSETRON HYDROCHLORIDE [Concomitant]
     Dosage: UNK
     Route: 042
     Dates: start: 20090317, end: 20090405
  39. POLYETHYLENE GLYCOL [Concomitant]
     Dosage: UNK
     Route: 048
     Dates: start: 20090324, end: 20090326
  40. POTASSIUM CHLORIDE [Concomitant]
     Dosage: UNK
     Route: 042
     Dates: start: 20090316, end: 20090404
  41. PSYLLIUM HYDROPHILIC MUCILLOID [Concomitant]
     Dosage: UNK
     Route: 061
     Dates: start: 20090323, end: 20090324
  42. RANITIDINE HYDROCHLORIDE [Concomitant]
     Dosage: UNK
     Route: 048
     Dates: start: 20090316, end: 20090405
  43. SIMETHICONE [Concomitant]
     Dosage: UNK
     Route: 048
     Dates: start: 20090403, end: 20090404
  44. SODIUM CHLORIDE [Concomitant]
     Dosage: UNK
     Route: 042
     Dates: start: 20090316, end: 20090406
  45. STANNOUS FLUORIDE [Concomitant]
     Dosage: UNK
     Route: 048
     Dates: start: 20090316, end: 20090406
  46. TACROLIMUS [Concomitant]
     Dosage: UNK
     Route: 042
     Dates: start: 20090323
  47. TRYPSIN [Concomitant]
     Dosage: UNK
     Route: 061
     Dates: start: 20090329, end: 20090331
  48. VANCOMYCIN HYDROCHLORIDE [Concomitant]
     Dosage: UNK
     Route: 042
     Dates: start: 20090316, end: 20090403
  49. METHYLPREDNISOLONE SODIUM SUCCINATE [Concomitant]
     Dosage: UNK
     Route: 042
     Dates: start: 20090404
  50. ACTIGALL [Concomitant]
     Dosage: UNK
     Route: 048
     Dates: start: 20090405, end: 20090524
  51. SOLU-MEDROL [Concomitant]
     Dosage: UNK
     Route: 042
     Dates: start: 20090322
  52. LOPERAMIDE HYDROCHLORIDE [Concomitant]
     Dosage: UNK
     Route: 048
     Dates: start: 20090401, end: 20090511
  53. RED BLOOD CELLS [Concomitant]
     Dosage: UNK
     Route: 042
     Dates: start: 20090323
  54. PLATELETS, HUMAN BLOOD [Concomitant]
     Dosage: UNK
     Route: 042
     Dates: start: 20090324

REACTIONS (5)
  - ACUTE GRAFT VERSUS HOST DISEASE IN LIVER [None]
  - BLOOD BILIRUBIN INCREASED [None]
  - ENGRAFTMENT SYNDROME [None]
  - RENAL FAILURE ACUTE [None]
  - RESPIRATORY FAILURE [None]
